FAERS Safety Report 4302294-X (Version None)
Quarter: 2004Q1

REPORT INFORMATION
  Report Type: 
  Country: None (occurrence: None)
  Receive Date: 20040220
  Receipt Date: 20040210
  Transmission Date: 20041129
  Serious: Yes (Life-Threatening)
  Sender: FDA-Public Use
  Company Number: 0400013EN0020P

PATIENT
  Age: 13 Year
  Sex: Male

DRUGS (2)
  1. ONCASPAR [Suspect]
     Indication: LYMPHOCYTIC LEUKAEMIA
     Dosage: 800 IU IV
     Route: 042
     Dates: start: 20030716, end: 20030901
  2. RANISAN (RANITIDINE) [Concomitant]

REACTIONS (7)
  - ANGIONEUROTIC OEDEMA [None]
  - DRUG HYPERSENSITIVITY [None]
  - ERYTHEMA [None]
  - FACE OEDEMA [None]
  - PYREXIA [None]
  - SHOCK [None]
  - URTICARIA [None]
